FAERS Safety Report 16825672 (Version 2)
Quarter: 2019Q3

REPORT INFORMATION
  Report Type: Spontaneous
  Country: RU (occurrence: RU)
  Receive Date: 20190919
  Receipt Date: 20190926
  Transmission Date: 20191005
  Serious: No
  Sender: FDA-Public Use
  Company Number: RU-009507513-1909RUS005185

PATIENT
  Age: 6 Year
  Sex: Female

DRUGS (1)
  1. POSACONAZOLE [Suspect]
     Active Substance: POSACONAZOLE
     Route: 042

REACTIONS (1)
  - Incorrect route of product administration [Unknown]
